FAERS Safety Report 5944725-5 (Version None)
Quarter: 2008Q4

REPORT INFORMATION
  Report Type: 
  Country: None (occurrence: None)
  Receive Date: 20081107
  Receipt Date: 20081027
  Transmission Date: 20090506
  Serious: Yes (Other)
  Sender: FDA-Public Use
  Company Number: DE-ROCHE-593810

PATIENT
  Age: 69 Year
  Sex: Female

DRUGS (1)
  1. CELLCEPT [Suspect]
     Indication: SCLERODERMA
     Route: 065
     Dates: start: 20080801

REACTIONS (1)
  - MYOCARDIAL INFARCTION [None]
